FAERS Safety Report 7816618-X (Version None)
Quarter: 2011Q4

REPORT INFORMATION
  Report Type: 
  Country: None (occurrence: None)
  Receive Date: 20111017
  Receipt Date: 20111006
  Transmission Date: 20120403
  Serious: Yes (Hospitalization)
  Sender: FDA-Public Use
  Company Number: US-UCBSA-042990

PATIENT
  Age: 62 Year
  Sex: Female
  Weight: 170.1 kg

DRUGS (20)
  1. MAGNESIUM OXIDE [Concomitant]
  2. MAGNESIUM OXIDE [Concomitant]
  3. OXYCODONE HCL [Concomitant]
  4. GABAPENTIN [Concomitant]
  5. ALBUTEROL [Concomitant]
     Dosage: NEBULIZER
  6. LASIX [Concomitant]
     Dosage: 40 MG
  7. BUDESONIDE [Concomitant]
     Dates: start: 20080801, end: 20110727
  8. POTASSIUM [Concomitant]
     Dosage: 20 MEQ
  9. CIMZIA [Suspect]
     Indication: CROHN'S DISEASE
     Route: 058
     Dates: start: 20110629, end: 20110101
  10. CIMZIA [Suspect]
     Route: 058
     Dates: start: 20100330, end: 20100623
  11. VITAMIN D [Concomitant]
     Dosage: 50000 UNITS EVRY WEEK
  12. PREDNISONE [Concomitant]
     Indication: CROHN'S DISEASE
  13. CIMZIA [Suspect]
     Dosage: 2ND DOSE: 16/MAR/2010
     Route: 058
     Dates: start: 20100302, end: 20100330
  14. ADVAIR DISKUS 100/50 [Concomitant]
     Dosage: 250/50 ONE PUFF BIB
  15. DICYCLOMINE [Concomitant]
  16. ENTOCORT EC [Concomitant]
  17. DILTIAZEM CD [Concomitant]
     Dosage: 240 DAILY
  18. LOSARTAN POTASSIUM [Concomitant]
     Dosage: 100 MG
  19. TRAMADOL HCL [Concomitant]
     Dosage: 50 MG EVERY 4 HOURS
  20. NEXIUM [Concomitant]
     Dosage: 40 MG

REACTIONS (1)
  - ASTHMA [None]
